FAERS Safety Report 7499031-7 (Version None)
Quarter: 2011Q2

REPORT INFORMATION
  Report Type: 
  Country: None (occurrence: None)
  Receive Date: 20110524
  Receipt Date: 20090306
  Transmission Date: 20111010
  Serious: Yes (Hospitalization, Other)
  Sender: FDA-Public Use
  Company Number: US-BAYER-200914652NA

PATIENT
  Age: 66 Year
  Sex: Male
  Weight: 75 kg

DRUGS (15)
  1. TRASYLOL [Suspect]
     Indication: COX-MAZE PROCEDURE
  2. ATROVENT [Concomitant]
     Indication: PRODUCT USED FOR UNKNOWN INDICATION
     Route: 045
  3. METOPROLOL SUCCINATE [Concomitant]
     Indication: BLOOD PRESSURE ABNORMAL
     Dosage: UNK
     Route: 048
     Dates: end: 20070101
  4. CARDIAZEM [Concomitant]
     Indication: ATRIAL FIBRILLATION
     Dosage: UNK
     Dates: start: 20061011
  5. NEO-SYNEPHRINOL [Concomitant]
     Dosage: 9 MG, UNK
     Route: 042
     Dates: start: 20070521
  6. LIPITOR [Concomitant]
     Indication: PRODUCT USED FOR UNKNOWN INDICATION
     Dosage: 40 MG, UNK
     Route: 048
     Dates: start: 20050101
  7. HYDROCODONE [Concomitant]
     Indication: PRODUCT USED FOR UNKNOWN INDICATION
     Route: 048
  8. REQUIP [Concomitant]
     Indication: PRODUCT USED FOR UNKNOWN INDICATION
  9. DILTIAZEM [Concomitant]
     Indication: ATRIAL FIBRILLATION
     Dosage: 240 MG, QD
     Dates: start: 20060901
  10. LISINOPRIL AND HYDROCHLOROTHIAZIDE [Concomitant]
     Dosage: 20/12.5
     Route: 048
     Dates: start: 20050101
  11. COUMADIN [Concomitant]
     Dosage: 2.5 MG EVEREY OTHER DAY, ALTERNATING WITH 5 MG EVERY OTHER DAY
     Route: 048
  12. PROTAMINE SULFATE [Concomitant]
     Dosage: 300 MG, UNK
     Route: 042
     Dates: start: 20070521
  13. TRASYLOL [Suspect]
     Indication: AORTIC VALVE REPLACEMENT
     Dates: start: 20070521
  14. XANAX [Concomitant]
     Indication: PRODUCT USED FOR UNKNOWN INDICATION
     Dosage: 0.5 MG, UNK
     Route: 048
     Dates: start: 20050101
  15. ACETAMINOPHEN [Concomitant]
     Indication: PAIN
     Dosage: UNK UNK, PRN
     Route: 048

REACTIONS (13)
  - RENAL IMPAIRMENT [None]
  - ANHEDONIA [None]
  - EMOTIONAL DISTRESS [None]
  - STRESS [None]
  - MULTI-ORGAN FAILURE [None]
  - PAIN [None]
  - INJURY [None]
  - RENAL FAILURE [None]
  - RENAL INJURY [None]
  - ANXIETY [None]
  - UNEVALUABLE EVENT [None]
  - FEAR [None]
  - RENAL FAILURE ACUTE [None]
